FAERS Safety Report 7014307-5 (Version None)
Quarter: 2010Q3

REPORT INFORMATION
  Report Type: 
  Country: None (occurrence: None)
  Receive Date: 20100924
  Receipt Date: 20100924
  Transmission Date: 20110219
  Serious: Yes (Hospitalization)
  Sender: FDA-Public Use
  Company Number: None

PATIENT
  Age: 48 Year
  Sex: Female
  Weight: 78.9259 kg

DRUGS (20)
  1. IFOSFAMIDE [Suspect]
     Indication: NEOPLASM MALIGNANT
     Dosage: 4650 MG QDAY IV
     Route: 042
     Dates: start: 20100715, end: 20100716
  2. DOXORUBICIN HCL [Concomitant]
  3. MESNA [Concomitant]
  4. ACETAMINOPHEN [Concomitant]
  5. GRANISETRON HCL [Concomitant]
  6. DEXAMETHASONE [Concomitant]
  7. LORAZEPAM [Concomitant]
  8. ONDANSETRON [Concomitant]
  9. PROCHLORPERAZINE [Concomitant]
  10. PANTOPRAZOLE [Concomitant]
  11. ZOLPIDEM [Concomitant]
  12. FENTANYL-75 [Concomitant]
  13. OXYCODONE HCL AND ACETAMINOPHEN [Concomitant]
  14. NPH INSULIN [Concomitant]
  15. LISINOPRIL [Concomitant]
  16. FENOFIBRATE [Concomitant]
  17. SIMVASTATIN [Concomitant]
  18. IPRATROPIUM INHALER [Concomitant]
  19. MAALOX [Concomitant]
  20. ALBUTEROL INHALER [Concomitant]

REACTIONS (11)
  - BLOOD PRESSURE INCREASED [None]
  - DEPRESSED LEVEL OF CONSCIOUSNESS [None]
  - HEART RATE INCREASED [None]
  - HYPOXIA [None]
  - METABOLIC ENCEPHALOPATHY [None]
  - MYDRIASIS [None]
  - NAUSEA [None]
  - RESPIRATORY DISTRESS [None]
  - RETCHING [None]
  - TACHYPNOEA [None]
  - UNRESPONSIVE TO STIMULI [None]
